FAERS Safety Report 5399177-3 (Version None)
Quarter: 2007Q3

REPORT INFORMATION
  Report Type: 
  Country: None (occurrence: None)
  Receive Date: 20070727
  Receipt Date: 20070717
  Transmission Date: 20080115
  Serious: Yes (Hospitalization)
  Sender: FDA-Public Use
  Company Number: AU-ELI_LILLY_AND_COMPANY-AU200707004181

PATIENT
  Age: 2 Year
  Sex: Female
  Weight: 13.7 kg

DRUGS (3)
  1. HUMATROPE [Suspect]
     Indication: HYPOPITUITARISM
     Dosage: 0.3 MG, DAILY (1/D)
     Route: 058
     Dates: start: 20050420
  2. LEVOTHYROXINE SODIUM [Concomitant]
     Indication: HYPOPITUITARISM
     Dosage: 50 UG, DAILY (1/D)
     Route: 048
     Dates: start: 20050420
  3. HYDROCORTISONE [Concomitant]
     Indication: HYPOPITUITARISM
     Dosage: 2 MG, 3/D
     Route: 048
     Dates: start: 20050419

REACTIONS (1)
  - VOMITING [None]
